FAERS Safety Report 17549660 (Version 1)
Quarter: 2020Q1

REPORT INFORMATION
  Report Type: Spontaneous
  Country: DE (occurrence: DE)
  Receive Date: 20200317
  Receipt Date: 20200317
  Transmission Date: 20200409
  Serious: Yes (Life-Threatening, Hospitalization, Other)
  Sender: FDA-Public Use
  Company Number: NVSC2020DE073577

PATIENT
  Age: 22 Year
  Sex: Female
  Weight: 55 kg

DRUGS (1)
  1. GILENYA [Suspect]
     Active Substance: FINGOLIMOD HYDROCHLORIDE
     Indication: MULTIPLE SCLEROSIS
     Dosage: 0.5 MG, QD
     Route: 048
     Dates: start: 20180515, end: 20190901

REACTIONS (6)
  - Aphasia [Recovered/Resolved]
  - Tumefactive multiple sclerosis [Recovering/Resolving]
  - Depressed level of consciousness [Recovering/Resolving]
  - Fatigue [Not Recovered/Not Resolved]
  - Multiple sclerosis relapse [Recovering/Resolving]
  - Hemiparesis [Recovering/Resolving]

NARRATIVE: CASE EVENT DATE: 20190901
